FAERS Safety Report 10337868 (Version 2)
Quarter: 2014Q3

REPORT INFORMATION
  Report Type: Spontaneous
  Country: US (occurrence: US)
  Receive Date: 20140724
  Receipt Date: 20140724
  Transmission Date: 20150326
  Serious: No
  Sender: FDA-Public Use
  Company Number: US-UNITED THERAPEUTICS-UTC-045049

PATIENT
  Sex: Male
  Weight: 80.73 kg

DRUGS (3)
  1. REMODULIN [Suspect]
     Active Substance: TREPROSTINIL
     Dosage: 0.022 UG/KG/MIN
     Route: 058
     Dates: start: 20131212
  2. ADCIRCA [Concomitant]
     Active Substance: TADALAFIL
  3. TRACLEER [Concomitant]
     Active Substance: BOSENTAN\BOSENTAN MONOHYDRATE

REACTIONS (10)
  - Infusion site swelling [Unknown]
  - Infusion site mass [Unknown]
  - Oedema [Unknown]
  - Infusion site pain [Unknown]
  - Diarrhoea [Unknown]
  - Infusion site erythema [Unknown]
  - Infusion site pustule [Unknown]
  - Pyrexia [Unknown]
  - Dyspnoea [Unknown]
  - Decreased appetite [Unknown]
